FAERS Safety Report 7474760-X (Version None)
Quarter: 2011Q2

REPORT INFORMATION
  Report Type: 
  Country: None (occurrence: None)
  Receive Date: 20110512
  Receipt Date: 20110502
  Transmission Date: 20111010
  Serious: Yes (Death)
  Sender: FDA-Public Use
  Company Number: CA-CELGENEUS-028-21880-11050286

PATIENT
  Sex: Male

DRUGS (13)
  1. AREDIA [Concomitant]
     Route: 065
  2. NOVOSEMIDE [Concomitant]
     Route: 065
  3. REVLIMID [Suspect]
     Indication: MULTIPLE MYELOMA
     Dosage: 10 MILLIGRAM
     Route: 048
     Dates: start: 20110325, end: 20110101
  4. VALACYCLOVIR [Concomitant]
     Route: 065
  5. WARFARIN [Concomitant]
     Route: 065
  6. LORAZEPAM [Concomitant]
     Route: 065
  7. CRESTOR [Concomitant]
     Route: 065
  8. RANITIDINE [Concomitant]
     Route: 065
  9. METOPROLOL SUCCINATE [Concomitant]
     Route: 065
  10. ZOPICLONE [Concomitant]
     Route: 065
  11. HYDROMORPHONE HCL [Concomitant]
     Route: 065
  12. DECADRON [Concomitant]
     Route: 065
  13. TERAZOSIN HCL [Concomitant]
     Route: 065

REACTIONS (1)
  - DEATH [None]
